FAERS Safety Report 8723203 (Version 3)
Quarter: 2013Q2

REPORT INFORMATION
  Report Type: Report from Study
  Country: CA (occurrence: CA)
  Receive Date: 20120814
  Receipt Date: 20130402
  Transmission Date: 20140414
  Serious: Yes (Other)
  Sender: FDA-Public Use
  Company Number: CA-UCBSA-062995

PATIENT
  Age: 65 Year
  Sex: Female

DRUGS (14)
  1. CIMZIA [Suspect]
     Indication: RHEUMATOID ARTHRITIS
     Route: 058
     Dates: start: 20120514, end: 20120611
  2. CIMZIA [Suspect]
     Indication: RHEUMATOID ARTHRITIS
     Dosage: EXP DATE ??-MAY-2014 FOR LOT NO 82342
     Route: 058
     Dates: start: 20120625, end: 20130320
  3. PREDNISONE [Concomitant]
     Indication: RHEUMATOID ARTHRITIS
     Route: 048
     Dates: start: 20020429, end: 2002
  4. PREDNISONE [Concomitant]
     Indication: RHEUMATOID ARTHRITIS
     Route: 048
     Dates: start: 200205
  5. PREDNISONE [Concomitant]
     Indication: RHEUMATOID ARTHRITIS
     Dosage: 10 MG IN MORNING AND 5 MG AT NIGHT
     Route: 048
     Dates: end: 2012
  6. PREDNISONE [Concomitant]
     Indication: RHEUMATOID ARTHRITIS
     Dosage: DOSE REDUCED TO 7.5MG
     Dates: start: 2012
  7. DIOVAN [Concomitant]
     Indication: HYPERTENSION
     Route: 048
  8. ELTROXIN [Concomitant]
     Indication: HYPERTHYROIDISM
     Route: 048
  9. LOSEC [Concomitant]
     Indication: GASTROOESOPHAGEAL REFLUX PROPHYLAXIS
     Route: 048
  10. ASA [Concomitant]
     Indication: PROPHYLAXIS
     Route: 048
  11. TYLENOL #3 [Concomitant]
     Indication: ANALGESIC THERAPY
     Dosage: 1-2 TABS Q 4-6 HOURS
     Route: 048
  12. HYDROMORPH [Concomitant]
     Indication: ANALGESIC THERAPY
     Route: 048
  13. CODEINE [Concomitant]
     Indication: PAIN
  14. CIPRO [Concomitant]
     Route: 048

REACTIONS (11)
  - Rheumatoid arthritis [Not Recovered/Not Resolved]
  - Candida infection [Recovering/Resolving]
  - Chills [Recovered/Resolved]
  - Haemoglobin decreased [Unknown]
  - White blood cell count decreased [Unknown]
  - Arthralgia [Not Recovered/Not Resolved]
  - Pyrexia [Not Recovered/Not Resolved]
  - Nausea [Recovered/Resolved]
  - Vomiting [Recovered/Resolved]
  - Joint swelling [Recovering/Resolving]
  - Drug ineffective [Recovered/Resolved]
